FAERS Safety Report 9749479 (Version 1)
Quarter: 2013Q4

REPORT INFORMATION
  Report Type: Spontaneous
  Country: US (occurrence: US)
  Receive Date: 20131212
  Receipt Date: 20131212
  Transmission Date: 20140711
  Serious: No
  Sender: FDA-Public Use
  Company Number: US-GILEAD-2013-0089582

PATIENT
  Sex: Female

DRUGS (4)
  1. LETAIRIS [Suspect]
     Indication: COR PULMONALE CHRONIC
     Dosage: 10 MG, QD
     Dates: start: 20110827
  2. RIOCIGUAT [Concomitant]
  3. WARFARIN [Concomitant]
  4. REMODULIN [Concomitant]

REACTIONS (2)
  - Pruritus [Unknown]
  - Hypersensitivity [Unknown]
